FAERS Safety Report 8860297 (Version 2)
Quarter: 2012Q4

REPORT INFORMATION
  Report Type: 
  Country: US (occurrence: US)
  Receive Date: 20121025
  Receipt Date: 20121210
  Transmission Date: 20130627
  Serious: Yes (Hospitalization, Other)
  Sender: FDA-Public Use
  Company Number: US-PFIZER INC-2012263587

PATIENT
  Age: 64 Year
  Sex: Female

DRUGS (4)
  1. INLYTA [Suspect]
     Indication: RENAL CELL CARCINOMA
     Dosage: 5 mg, 2x/day
     Route: 048
     Dates: start: 20120925
  2. INLYTA [Interacting]
     Dosage: 5 mg, 2x/day
     Route: 048
     Dates: start: 20121001, end: 20121015
  3. INLYTA [Interacting]
     Dosage: 2 mg, 2x/day
     Route: 048
  4. DEPAKOTE [Interacting]
     Indication: SEIZURES
     Dosage: 500 mg, 2x/day
     Route: 048

REACTIONS (5)
  - Drug interaction [Unknown]
  - Nausea [Recovered/Resolved]
  - Vomiting [Recovered/Resolved]
  - Diarrhoea [Recovered/Resolved]
  - Fatigue [Unknown]
